FAERS Safety Report 5452335-1 (Version None)
Quarter: 2007Q3

REPORT INFORMATION
  Report Type: 
  Country: None (occurrence: None)
  Receive Date: 20070912
  Receipt Date: 20070912
  Transmission Date: 20080115
  Serious: Yes (Hospitalization)
  Sender: FDA-Public Use
  Company Number: None

PATIENT
  Age: 64 Year
  Sex: Male

DRUGS (1)
  1. DIGOXIN [Suspect]
     Indication: CARDIAC FAILURE CONGESTIVE
     Dosage: 0.25MG EVERY DAY PO
     Route: 048
     Dates: start: 20070829, end: 20070831

REACTIONS (11)
  - BUNDLE BRANCH BLOCK RIGHT [None]
  - DIZZINESS [None]
  - DIZZINESS POSTURAL [None]
  - DYSPNOEA [None]
  - ELECTROCARDIOGRAM T WAVE ABNORMAL [None]
  - HYPERKALAEMIA [None]
  - HYPOTENSION [None]
  - LEFT ATRIAL DILATATION [None]
  - MYOCARDIAL INFARCTION [None]
  - ORTHOPNOEA [None]
  - PALPITATIONS [None]
